FAERS Safety Report 4429255-4 (Version None)
Quarter: 2004Q3

REPORT INFORMATION
  Report Type: 
  Country: None (occurrence: None)
  Receive Date: 20040817
  Receipt Date: 20040817
  Transmission Date: 20050211
  Serious: Yes (Other)
  Sender: FDA-Public Use
  Company Number: None

PATIENT
  Age: 63 Year
  Sex: Female
  Weight: 56.6996 kg

DRUGS (8)
  1. INTEGRILIN [Suspect]
     Indication: ACUTE MYOCARDIAL INFARCTION
     Dosage: 9 ML/HR IV
     Route: 042
     Dates: start: 20040719, end: 20040719
  2. PLAVIX [Concomitant]
  3. ASPIRIN [Concomitant]
  4. NITROGLYCERIN [Concomitant]
  5. MORPHINE [Concomitant]
  6. ATORVASTATIN [Concomitant]
  7. LISINOPRIL [Concomitant]
  8. METOPROLOL [Concomitant]

REACTIONS (2)
  - EPISTAXIS [None]
  - INFUSION RELATED REACTION [None]
